FAERS Safety Report 4505953-9 (Version None)
Quarter: 2004Q4

REPORT INFORMATION
  Report Type: 
  Country: None (occurrence: None)
  Receive Date: 20041119
  Receipt Date: 20040915
  Transmission Date: 20050328
  Serious: Yes (Hospitalization)
  Sender: FDA-Public Use
  Company Number: PHBS2004JP12307

PATIENT
  Age: 15 Year
  Sex: Female

DRUGS (2)
  1. CYCLOSPORINE [Suspect]
     Dosage: 1.5 MG/KG, BID
     Route: 065
     Dates: start: 20031001
  2. METHOTREXATE [Concomitant]
     Dosage: UNK, UNK

REACTIONS (5)
  - CONVULSION [None]
  - HYPERTENSION [None]
  - HYPONATRAEMIA [None]
  - INAPPROPRIATE ANTIDIURETIC HORMONE SECRETION [None]
  - LEUKOENCEPHALOPATHY [None]
